FAERS Safety Report 21540395 (Version 1)
Quarter: 2022Q4

REPORT INFORMATION
  Report Type: Spontaneous
  Country: CL (occurrence: CL)
  Receive Date: 20221102
  Receipt Date: 20221102
  Transmission Date: 20230113
  Serious: Yes (Hospitalization)
  Sender: FDA-Public Use
  Company Number: CL-AMICUS THERAPEUTICS, INC.-AMI_2053

PATIENT
  Sex: Male

DRUGS (1)
  1. GALAFOLD [Suspect]
     Active Substance: MIGALASTAT HYDROCHLORIDE
     Indication: Product used for unknown indication
     Dosage: 123 MILLIGRAM, QOD
     Route: 048

REACTIONS (1)
  - Cardiac disorder [Unknown]
